FAERS Safety Report 4376008-1 (Version None)
Quarter: 2004Q2

REPORT INFORMATION
  Report Type: 
  Country: None (occurrence: None)
  Receive Date: 20040609
  Receipt Date: 20040609
  Transmission Date: 20050107
  Serious: Yes (Hospitalization)
  Sender: FDA-Public Use
  Company Number: None

PATIENT
  Sex: Female

DRUGS (10)
  1. GEFITINIB [Suspect]
     Indication: NON-SMALL CELL LUNG CANCER
     Dosage: 250 MG PO DAILY
     Route: 048
     Dates: start: 20040312, end: 20040314
  2. MEGACE [Concomitant]
  3. LOVENOX [Concomitant]
  4. FOLATE [Concomitant]
  5. OXYCONTIN [Concomitant]
  6. ZOLOFT [Concomitant]
  7. COLACE [Concomitant]
  8. SENNA [Concomitant]
  9. ARANESP [Concomitant]
  10. ZOMETA [Concomitant]

REACTIONS (3)
  - DRUG HYPERSENSITIVITY [None]
  - LUNG INFILTRATION [None]
  - OXYGEN SATURATION DECREASED [None]
